FAERS Safety Report 8873452 (Version 1)
Quarter: 2012Q4

REPORT INFORMATION
  Report Type: 
  Country: US (occurrence: US)
  Receive Date: 20121030
  Receipt Date: 20121030
  Transmission Date: 20130627
  Serious: Yes (Hospitalization)
  Sender: FDA-Public Use
  Company Number: US-ELI_LILLY_AND_COMPANY-US201210005791

PATIENT
  Sex: Male

DRUGS (5)
  1. ADCIRCA [Suspect]
     Indication: PULMONARY ARTERIAL HYPERTENSION
     Dosage: 40 mg, qd
     Route: 065
     Dates: start: 2010
  2. GLYBURIDE W/METFORMIN [Concomitant]
  3. METFORMIN [Concomitant]
  4. COUMADIN [Concomitant]
  5. FUROSEMIDE [Concomitant]

REACTIONS (4)
  - Adverse event [Unknown]
  - Dyspnoea [Not Recovered/Not Resolved]
  - Wheezing [Not Recovered/Not Resolved]
  - Oedema peripheral [Unknown]
